FAERS Safety Report 7311508-3 (Version None)
Quarter: 2011Q1

REPORT INFORMATION
  Report Type: 
  Country: None (occurrence: None)
  Receive Date: 20110216
  Receipt Date: 20110216
  Transmission Date: 20110831
  Serious: Yes (Other)
  Sender: FDA-Public Use
  Company Number: None

PATIENT
  Age: 56 Year
  Sex: Female
  Weight: 65.318 kg

DRUGS (6)
  1. ATENOLOL [Concomitant]
  2. XANAX [Concomitant]
  3. DIOVAN [Concomitant]
  4. SEROQUEL [Suspect]
     Indication: INSOMNIA
     Dosage: 50 MG 1/DAY AT BEDTIME PO
     Route: 048
  5. ZOLOFT [Suspect]
     Indication: GENERALISED ANXIETY DISORDER
     Dosage: 100 MG 1/DAY AT DAYTIME PO
     Route: 048
  6. ZOLOFT [Suspect]
     Indication: DEPRESSION
     Dosage: 100 MG 1/DAY AT DAYTIME PO
     Route: 048

REACTIONS (8)
  - ABNORMAL DREAMS [None]
  - INSOMNIA [None]
  - PHOTOPSIA [None]
  - IRRITABLE BOWEL SYNDROME [None]
  - AGITATION [None]
  - OFF LABEL USE [None]
  - TREATMENT FAILURE [None]
  - SEROTONIN SYNDROME [None]
